FAERS Safety Report 8075673-5 (Version None)
Quarter: 2012Q1

REPORT INFORMATION
  Report Type: 
  Country: None (occurrence: None)
  Receive Date: 20120127
  Receipt Date: 20120120
  Transmission Date: 20120608
  Serious: Yes (Other)
  Sender: FDA-Public Use
  Company Number: GB-GENZYME-CLOF-1001998

PATIENT
  Sex: Male
  Weight: 87.5 kg

DRUGS (10)
  1. EVOLTRA [Suspect]
     Indication: ACUTE MYELOID LEUKAEMIA
     Dosage: 20 MG/M2, QD
     Route: 041
     Dates: start: 20111122, end: 20111126
  2. ATORVASTATIN [Concomitant]
     Indication: BLOOD CHOLESTEROL
     Dosage: 40 MG, QD
     Route: 048
     Dates: start: 20111121
  3. GLICLAZIDE [Concomitant]
     Indication: TYPE 2 DIABETES MELLITUS
     Dosage: 80 MG, BID
     Route: 048
     Dates: start: 20090101
  4. GLUCOPHAGE [Concomitant]
     Indication: TYPE 2 DIABETES MELLITUS
     Dosage: 2 G, QD
     Route: 048
     Dates: start: 20090101
  5. FLUCONAZOLE [Concomitant]
     Indication: ANTI-INFECTIVE THERAPY
     Dosage: 50 MG, QD
     Route: 048
     Dates: start: 20111121
  6. OMEPRAZOLE [Concomitant]
     Indication: EPIGASTRIC DISCOMFORT
     Dosage: 20 MG, QD
     Route: 048
     Dates: start: 20111121
  7. PLERIXAFOR [Suspect]
     Indication: ACUTE MYELOID LEUKAEMIA
  8. DAUNORUBICIN HYDROCHLORIDE [Suspect]
     Indication: ACUTE MYELOID LEUKAEMIA
     Dosage: 50 MG/M2, QD
     Route: 041
     Dates: start: 20111122, end: 20111126
  9. PLERIXAFOR [Suspect]
     Indication: HAEMATOPOIETIC STEM CELL MOBILISATION
     Dosage: 240 MCG/KG, QD
     Route: 058
     Dates: start: 20111122, end: 20111126
  10. ACYCLOVIR [Concomitant]
     Indication: ANTIVIRAL TREATMENT
     Dosage: 200 MG, TID
     Route: 048
     Dates: start: 20111121

REACTIONS (1)
  - NEUTROPENIA [None]
